FAERS Safety Report 9340165 (Version 1)
Quarter: 2013Q2

REPORT INFORMATION
  Report Type: Other
  Country: US (occurrence: US)
  Receive Date: 20130610
  Receipt Date: 20130610
  Transmission Date: 20140414
  Serious: No
  Sender: FDA-Public Use
  Company Number: US-LEHIGH_VALLEY-USA-2012POI058000056

PATIENT
  Sex: Male
  Weight: 104.3 kg

DRUGS (4)
  1. OXYCODONE HYDROCHLORIDE [Suspect]
     Indication: BACK PAIN
     Dates: start: 1992, end: 20120411
  2. OXYCODONE HYDROCHLORIDE [Suspect]
     Indication: ARTHRALGIA
     Dates: start: 20120412
  3. FENTANYL PATCH [Suspect]
     Indication: BACK PAIN
     Route: 062
     Dates: start: 1992
  4. FENTANYL PATCH [Suspect]
     Indication: ARTHRALGIA

REACTIONS (3)
  - Withdrawal syndrome [Recovered/Resolved]
  - Drug tolerance [Recovered/Resolved]
  - Pyrexia [Not Recovered/Not Resolved]
